FAERS Safety Report 26172838 (Version 1)
Quarter: 2025Q4

REPORT INFORMATION
  Report Type: Spontaneous
  Country: ZA (occurrence: ZA)
  Receive Date: 20251218
  Receipt Date: 20251218
  Transmission Date: 20260117
  Serious: Yes (Hospitalization)
  Sender: ROCHE
  Company Number: ZA-ROCHE-10000461528

PATIENT
  Sex: Female

DRUGS (1)
  1. TECENTRIQ [Suspect]
     Active Substance: ATEZOLIZUMAB
     Indication: Non-small cell lung cancer metastatic
     Dosage: SINGLE AGENT - NOT COMBINED WITH CHEMOTHERAPY; INDICATION: 1ST LINE, PD-L1 HIGH

REACTIONS (1)
  - Hepatic enzyme increased [Unknown]
